FAERS Safety Report 4864859-6 (Version None)
Quarter: 2005Q4

REPORT INFORMATION
  Report Type: 
  Country: None (occurrence: None)
  Receive Date: 20051201
  Receipt Date: 20050720
  Transmission Date: 20060501
  Serious: No
  Sender: FDA-Public Use
  Company Number: 2005PV000484

PATIENT
  Age: 60 Year
  Sex: Female
  Weight: 68.9467 kg

DRUGS (8)
  1. BYETTA [Suspect]
     Indication: DIABETES MELLITUS NON-INSULIN-DEPENDENT
     Dosage: 5 MCG; BID; SC
     Route: 058
     Dates: start: 20050720
  2. ENALAPRIL [Concomitant]
  3. DIOVAN HCT [Concomitant]
  4. VYTORIN [Concomitant]
  5. GLIPIZIDE [Concomitant]
  6. RANITIDINE [Concomitant]
  7. HYDROCHLORIDE [Concomitant]
  8. ALPRAZOLAM [Concomitant]

REACTIONS (4)
  - BLOOD GLUCOSE DECREASED [None]
  - DECREASED APPETITE [None]
  - FEELING JITTERY [None]
  - HEART RATE INCREASED [None]
